FAERS Safety Report 7819815-2 (Version None)
Quarter: 2011Q4

REPORT INFORMATION
  Report Type: 
  Country: None (occurrence: None)
  Receive Date: 20111018
  Receipt Date: 20110331
  Transmission Date: 20120403
  Serious: No
  Sender: FDA-Public Use
  Company Number: US-ASTRAZENECA-2011SE18505

PATIENT
  Age: 56 Year
  Sex: Female
  Weight: 68 kg

DRUGS (5)
  1. PROMETRIUM [Concomitant]
  2. PREDNISONE [Concomitant]
  3. OMNARIS [Concomitant]
  4. SYMBICORT [Suspect]
     Indication: ASTHMA
     Dosage: TOTAL DAILY DOSAGE: 320 MCG, FREQUENCY: TWO TIMES A DAY.
     Route: 055
  5. SENESTINE [Concomitant]

REACTIONS (3)
  - COUGH [None]
  - LARYNGITIS [None]
  - PNEUMONIA [None]
